FAERS Safety Report 6718658-0 (Version None)
Quarter: 2010Q2

REPORT INFORMATION
  Report Type: 
  Country: None (occurrence: None)
  Receive Date: 20100510
  Receipt Date: 20100426
  Transmission Date: 20101027
  Serious: Yes (Hospitalization, Other)
  Sender: FDA-Public Use
  Company Number: US-ABBOTT-10P-163-0640776-00

PATIENT
  Sex: Male

DRUGS (5)
  1. VALPROATE SODIUM [Suspect]
     Indication: DRUG USE FOR UNKNOWN INDICATION
     Route: 048
  2. CLOZAPINE [Suspect]
     Indication: SCHIZOPHRENIA
     Route: 048
  3. CLOZAPINE [Suspect]
     Route: 048
  4. CLOZAPINE [Suspect]
     Route: 048
  5. CLOZAPINE [Suspect]
     Route: 048

REACTIONS (6)
  - CHOLECYSTITIS [None]
  - FATIGUE [None]
  - HEADACHE [None]
  - HOT FLUSH [None]
  - PANCREATITIS ACUTE [None]
  - SOMNOLENCE [None]
